FAERS Safety Report 19658877 (Version 1)
Quarter: 2021Q3

REPORT INFORMATION
  Report Type: Spontaneous
  Country: US (occurrence: US)
  Receive Date: 20210805
  Receipt Date: 20210805
  Transmission Date: 20211014
  Serious: Yes (Other)
  Sender: FDA-Public Use
  Company Number: US-AMGEN-USASP2021118831

PATIENT
  Age: 54 Year
  Sex: Female

DRUGS (3)
  1. AMBRISENTAN [Concomitant]
     Active Substance: AMBRISENTAN
     Dosage: UNK
     Route: 065
  2. OTEZLA [Suspect]
     Active Substance: APREMILAST
     Indication: PSORIATIC ARTHROPATHY
     Dosage: 30 MILLIGRAM, BID
     Route: 048
  3. SILDENAFIL. [Concomitant]
     Active Substance: SILDENAFIL
     Dosage: UNK
     Route: 065

REACTIONS (2)
  - Psoriatic arthropathy [Not Recovered/Not Resolved]
  - Nausea [Not Recovered/Not Resolved]

NARRATIVE: CASE EVENT DATE: 20210730
